FAERS Safety Report 6607631-9 (Version None)
Quarter: 2010Q1

REPORT INFORMATION
  Report Type: 
  Country: None (occurrence: None)
  Receive Date: 20100217
  Receipt Date: 20100205
  Transmission Date: 20100710
  Serious: Yes (Hospitalization, Other)
  Sender: FDA-Public Use
  Company Number: AEIRL200800111

PATIENT
  Age: 43 Year
  Sex: Male

DRUGS (7)
  1. PROLASTIN [Suspect]
     Indication: ALPHA-1 ANTI-TRYPSIN DEFICIENCY
     Dosage: 10 GM; Q2W; IV, 5 GM; Q2W; IV, ; IV
     Route: 042
     Dates: start: 20060101, end: 20080101
  2. PROLASTIN [Suspect]
     Indication: ALPHA-1 ANTI-TRYPSIN DEFICIENCY
     Dosage: 10 GM; Q2W; IV, 5 GM; Q2W; IV, ; IV
     Route: 042
     Dates: start: 20080428, end: 20080428
  3. PROLASTIN [Suspect]
     Indication: ALPHA-1 ANTI-TRYPSIN DEFICIENCY
     Dosage: 10 GM; Q2W; IV, 5 GM; Q2W; IV, ; IV
     Route: 042
     Dates: start: 20090817, end: 20100101
  4. PROLASTIN [Suspect]
     Indication: ALPHA-1 ANTI-TRYPSIN DEFICIENCY
     Dosage: 10 GM; Q2W; IV, 5 GM; Q2W; IV, ; IV
     Route: 042
     Dates: start: 20100201, end: 20100201
  5. PROLASTIN [Suspect]
  6. SYMBICORT [Concomitant]
  7. TIOTROPIUM [Concomitant]

REACTIONS (9)
  - ANXIETY [None]
  - CHEST DISCOMFORT [None]
  - CHILLS [None]
  - COUGH [None]
  - DIZZINESS [None]
  - DYSPNOEA [None]
  - INFUSION RELATED REACTION [None]
  - NAUSEA [None]
  - TACHYPNOEA [None]
